FAERS Safety Report 8839611 (Version 3)
Quarter: 2012Q4

REPORT INFORMATION
  Report Type: 
  Country: JP (occurrence: JP)
  Receive Date: 20121015
  Receipt Date: 20121030
  Transmission Date: 20130627
  Serious: Yes (Death, Other)
  Sender: FDA-Public Use
  Company Number: PHHY2012JP090447

PATIENT
  Age: 75 Year
  Sex: Female
  Weight: 41 kg

DRUGS (7)
  1. TEGRETOL [Suspect]
     Indication: EPILEPSY
     Dosage: 200 mg, BID
     Route: 048
     Dates: start: 20100706, end: 20100818
  2. SELENICA-R [Suspect]
     Indication: EPILEPSY
     Dosage: 600 mg, daily
     Route: 048
     Dates: start: 20100818, end: 20100905
  3. ALEVIATIN [Suspect]
     Indication: EPILEPSY
     Dosage: 200 mg, daily
     Route: 048
     Dates: start: 20100913
  4. BAYASPIRIN [Suspect]
     Route: 048
  5. TAKEPRON [Suspect]
     Route: 048
  6. PERMAX [Suspect]
     Route: 048
  7. STEROIDS NOS [Concomitant]

REACTIONS (9)
  - Multi-organ failure [Fatal]
  - Drug reaction with eosinophilia and systemic symptoms [Fatal]
  - Generalised erythema [Fatal]
  - Drug eruption [Fatal]
  - Pleural fibrosis [Unknown]
  - Pleural effusion [Unknown]
  - Hepatic failure [Unknown]
  - Altered state of consciousness [Unknown]
  - Pyrexia [Unknown]
